FAERS Safety Report 7712373-2 (Version None)
Quarter: 2011Q3

REPORT INFORMATION
  Report Type: 
  Country: None (occurrence: None)
  Receive Date: 20110826
  Receipt Date: 20110822
  Transmission Date: 20111222
  Serious: Yes (Hospitalization, Other)
  Sender: FDA-Public Use
  Company Number: CO-ROCHE-792545

PATIENT
  Sex: Female

DRUGS (3)
  1. ACTEMRA [Suspect]
     Indication: RHEUMATOID ARTHRITIS
     Route: 042
     Dates: start: 20101217
  2. DICLOFENAC SODIUM [Concomitant]
     Indication: PAIN
     Route: 048
  3. TRAMADOL HCL [Concomitant]
     Indication: PAIN
     Dosage: DOSE:DROPS AS REPORTED: FREQUENCY:AS NECESSARY
     Route: 048

REACTIONS (4)
  - CHEST PAIN [None]
  - PARAESTHESIA [None]
  - DYSPNOEA [None]
  - DIARRHOEA [None]
